FAERS Safety Report 5056927-3 (Version None)
Quarter: 2006Q2

REPORT INFORMATION
  Report Type: 
  Country: None (occurrence: None)
  Receive Date: 20060622
  Receipt Date: 20060119
  Transmission Date: 20061013
  Serious: Yes (Hospitalization)
  Sender: FDA-Public Use
  Company Number: US-JNJFOC-20040301127

PATIENT
  Age: 49 Year
  Sex: Male
  Weight: 74.8435 kg

DRUGS (6)
  1. DURAGESIC-100 [Suspect]
     Indication: PAIN
     Dosage: 50 UG/HR, TRANSDERMAL
     Route: 062
     Dates: start: 20040205, end: 20040206
  2. ELAVIL (AMITRIPTYINE HYDROCHLORIDE) [Concomitant]
  3. ZANAFLEX [Concomitant]
  4. TALACEN (FORTAGESIC) [Concomitant]
  5. LORTAB [Concomitant]
  6. ACTIQ [Concomitant]

REACTIONS (15)
  - BRADYCARDIA [None]
  - CHEST PAIN [None]
  - COLD SWEAT [None]
  - DISORIENTATION [None]
  - DIZZINESS [None]
  - DYSPNOEA [None]
  - FLUSHING [None]
  - HYPERHIDROSIS [None]
  - HYPOVENTILATION [None]
  - NAUSEA [None]
  - PALLOR [None]
  - PALPITATIONS [None]
  - STARING [None]
  - VOMITING [None]
  - WEIGHT DECREASED [None]
